FAERS Safety Report 8224706-1 (Version None)
Quarter: 2012Q1

REPORT INFORMATION
  Report Type: 
  Country: None (occurrence: None)
  Receive Date: 20120321
  Receipt Date: 20120315
  Transmission Date: 20120608
  Serious: Yes (Death)
  Sender: FDA-Public Use
  Company Number: US-ROXANE LABORATORIES, INC.-2012-RO-00862RO

PATIENT
  Age: 65 Year
  Sex: Male

DRUGS (3)
  1. METHADONE HCL [Suspect]
     Indication: CANCER PAIN
     Route: 048
  2. METHADONE HCL [Suspect]
     Indication: BREAKTHROUGH PAIN
     Dosage: 240 MG
     Route: 048
  3. METHADONE HCL [Suspect]
     Route: 048

REACTIONS (1)
  - ACUTE MYOCARDIAL INFARCTION [None]
